FAERS Safety Report 6631333-6 (Version None)
Quarter: 2010Q1

REPORT INFORMATION
  Report Type: 
  Country: None (occurrence: None)
  Receive Date: 20100311
  Receipt Date: 20100311
  Transmission Date: 20100710
  Serious: Yes (Hospitalization)
  Sender: FDA-Public Use
  Company Number: None

PATIENT
  Age: 84 Year
  Sex: Male
  Weight: 79.3 kg

DRUGS (1)
  1. CEPHALEXIN [Suspect]
     Dosage: 500 MG BID PO
     Route: 048
     Dates: start: 20091106, end: 20091119

REACTIONS (2)
  - ABDOMINAL PAIN [None]
  - DIARRHOEA [None]
